FAERS Safety Report 5728339-8 (Version None)
Quarter: 2008Q2

REPORT INFORMATION
  Report Type: 
  Country: None (occurrence: None)
  Receive Date: 20080506
  Receipt Date: 20080424
  Transmission Date: 20081010
  Serious: Yes (Hospitalization)
  Sender: FDA-Public Use
  Company Number: PHHO2008US05615

PATIENT
  Age: 47 Year
  Sex: Female
  Weight: 90.7 kg

DRUGS (31)
  1. AMITRIPTLINE HCL [Concomitant]
  2. AMITIZA [Concomitant]
  3. LEVOTHYROXINE SODIUM [Concomitant]
  4. MAGNESIUM CITRATE [Concomitant]
  5. VITAMIN D [Concomitant]
  6. CALCIUM [Concomitant]
  7. COGENTIN [Concomitant]
  8. CREON [Concomitant]
  9. DEPAKOTE [Concomitant]
  10. DEPLIN [Concomitant]
  11. DOCUSATE [Concomitant]
  12. FLAXSEED OIL [Concomitant]
  13. LACTULOSE [Concomitant]
  14. GLUCOSAMINE W/CHONDROITIN [Concomitant]
  15. VITAMIN CAP [Concomitant]
  16. NEURONTIN [Concomitant]
  17. OMEGA 3 FISH OIL [Concomitant]
  18. PINDOLOL [Concomitant]
  19. PROAMATINE [Concomitant]
  20. RELAFEN [Concomitant]
  21. RISPERIDONE [Concomitant]
  22. ROZEREM [Concomitant]
  23. SYMMETREL [Concomitant]
  24. ASCORBIC ACID [Concomitant]
  25. ZYPREXA [Concomitant]
  26. ULTRAM [Concomitant]
  27. MAXALT [Concomitant]
  28. ZOMIG [Concomitant]
  29. VALERIAN [Concomitant]
  30. PROLIXIN [Concomitant]
  31. TEGASEROD [Suspect]
     Indication: IRRITABLE BOWEL SYNDROME
     Dosage: 12MG
     Route: 048
     Dates: start: 20080325

REACTIONS (3)
  - DYSPNOEA EXERTIONAL [None]
  - OEDEMA PERIPHERAL [None]
  - SWELLING [None]
